FAERS Safety Report 6568266-X (Version None)
Quarter: 2010Q1

REPORT INFORMATION
  Report Type: 
  Country: None (occurrence: None)
  Receive Date: 20100203
  Receipt Date: 20100122
  Transmission Date: 20100710
  Serious: Yes (Other)
  Sender: FDA-Public Use
  Company Number: GR-PFIZER INC-2010009607

PATIENT
  Age: 78 Year
  Sex: Male

DRUGS (1)
  1. SUTENT [Suspect]
     Indication: RENAL CELL CARCINOMA STAGE II
     Dosage: 50 MG, 1X/DAY
     Route: 048
     Dates: start: 20080501, end: 20080601

REACTIONS (2)
  - DRUG TOXICITY [None]
  - HYPERTENSION [None]
